FAERS Safety Report 10573062 (Version 1)
Quarter: 2014Q4

REPORT INFORMATION
  Report Type: Spontaneous
  Country: US (occurrence: None)
  Receive Date: 20141107
  Receipt Date: 20141107
  Transmission Date: 20150529
  Serious: No
  Sender: FDA-Public Use
  Company Number: None

PATIENT
  Age: 69 Year
  Sex: Male
  Weight: 86.18 kg

DRUGS (1)
  1. OTEZLA [Suspect]
     Active Substance: APREMILAST
     Indication: PSORIASIS
     Dosage: INCREASING DOSAGE TWICE DAILY TAKEN BY MOUTH
     Route: 048
     Dates: start: 20140723, end: 20140809

REACTIONS (2)
  - Drug ineffective [None]
  - Arthralgia [None]

NARRATIVE: CASE EVENT DATE: 20140722
